FAERS Safety Report 16893580 (Version 3)
Quarter: 2020Q1

REPORT INFORMATION
  Report Type: Report from Study
  Country: US (occurrence: US)
  Receive Date: 20191008
  Receipt Date: 20200203
  Transmission Date: 20200409
  Serious: Yes (Other)
  Sender: FDA-Public Use
  Company Number: US-ROCHE-2428619

PATIENT
  Age: 73 Year
  Sex: Female
  Weight: 86.5 kg

DRUGS (3)
  1. ATEZOLIZUMAB. [Suspect]
     Active Substance: ATEZOLIZUMAB
     Indication: CHOLANGIOCARCINOMA
     Dosage: ON DAYS 1 AND 15?LAST DOSE ON 12/FEB/2019
     Route: 042
     Dates: start: 20181029
  2. COBIMETINIB. [Suspect]
     Active Substance: COBIMETINIB
     Indication: CHOLANGIOCARCINOMA
     Dosage: ON DAYS 1 - 21?LAST DOSE ON 21/FEB/2019
     Route: 048
     Dates: start: 20181029
  3. COBIMETINIB. [Suspect]
     Active Substance: COBIMETINIB
     Route: 065
     Dates: start: 20181029

REACTIONS (2)
  - Rash maculo-papular [Recovered/Resolved]
  - Urticaria [Unknown]

NARRATIVE: CASE EVENT DATE: 20190226
